FAERS Safety Report 4564176-8 (Version None)
Quarter: 2005Q1

REPORT INFORMATION
  Report Type: 
  Country: None (occurrence: None)
  Receive Date: 20050126
  Receipt Date: 20050114
  Transmission Date: 20050727
  Serious: Yes (Other)
  Sender: FDA-Public Use
  Company Number: 2004SE06491

PATIENT
  Sex: Female

DRUGS (3)
  1. SEROQUEL [Suspect]
     Indication: PSYCHOTIC DISORDER
     Dosage: 100 MG DAILY PO
     Route: 048
     Dates: start: 20040101
  2. HALDOL [Suspect]
     Indication: PSYCHOTIC DISORDER
     Dosage: 2 MG DAILY PO
     Route: 048
     Dates: start: 20040101
  3. ORFIRIL [Concomitant]

REACTIONS (1)
  - WHITE BLOOD CELL COUNT DECREASED [None]
